FAERS Safety Report 12535622 (Version 1)
Quarter: 2016Q3

REPORT INFORMATION
  Report Type: Spontaneous
  Country: US (occurrence: None)
  Receive Date: 20160706
  Receipt Date: 20160706
  Transmission Date: 20161109
  Serious: Yes (Hospitalization)
  Sender: FDA-Public Use
  Company Number: None

PATIENT
  Age: 3 Year
  Sex: Female
  Weight: 13.3 kg

DRUGS (9)
  1. CYCLOPHOSPHAMIDE. [Suspect]
     Active Substance: CYCLOPHOSPHAMIDE
     Dates: end: 20160601
  2. DOXORUBICIN HYDROCHLORIDE. [Concomitant]
     Active Substance: DOXORUBICIN HYDROCHLORIDE
     Dates: end: 20160509
  3. THIOGUANINE (6-TG) [Concomitant]
     Active Substance: THIOGUANINE ANHYDROUS
     Dates: end: 20160614
  4. HYDROCORTISONE. [Concomitant]
     Active Substance: HYDROCORTISONE
     Dosage: GIVEN IT
     Dates: end: 20160601
  5. CYTARABINE. [Concomitant]
     Active Substance: CYTARABINE
     Dosage: 48 MG WAS GIVEN?IT
     Dates: end: 20160611
  6. METHOTREXATE. [Concomitant]
     Active Substance: METHOTREXATE
     Dosage: GIVEN IT
     Dates: end: 20160601
  7. ONCASPAR [Concomitant]
     Active Substance: PEGASPARGASE
     Dates: end: 20160615
  8. VINCRISTINE SULFATE. [Concomitant]
     Active Substance: VINCRISTINE SULFATE
     Dates: end: 20160622
  9. DEXAMETHASONE. [Concomitant]
     Active Substance: DEXAMETHASONE
     Dates: end: 20160515

REACTIONS (11)
  - Hypotension [None]
  - Lung infiltration [None]
  - Respiratory distress [None]
  - Pneumonia [None]
  - Tachypnoea [None]
  - General physical health deterioration [None]
  - Anaemia [None]
  - Human rhinovirus test positive [None]
  - Febrile neutropenia [None]
  - Fluid overload [None]
  - Hyperglycaemia [None]

NARRATIVE: CASE EVENT DATE: 20160630
